FAERS Safety Report 5240666-X (Version None)
Quarter: 2007Q1

REPORT INFORMATION
  Report Type: 
  Country: None (occurrence: None)
  Receive Date: 20070219
  Receipt Date: 20070206
  Transmission Date: 20070707
  Serious: Yes (Other)
  Sender: FDA-Public Use
  Company Number: 2007AP00851

PATIENT
  Age: 29379 Day
  Sex: Female

DRUGS (16)
  1. XYLOCAINE [Suspect]
     Indication: PAIN
  2. OMEPRAZOLE [Suspect]
  3. RENITEC [Suspect]
     Indication: ESSENTIAL HYPERTENSION
     Route: 048
  4. BRUFEN [Suspect]
     Indication: PAIN
     Route: 048
  5. ACETAMINOPHEN W/ CODEINE [Suspect]
  6. MYLANTA [Suspect]
  7. METOCLOPRAMIDE HYDROCHLORIDE [Suspect]
  8. MORPHINE SUL INJ [Suspect]
     Indication: PAIN
     Route: 042
  9. TERBUTALINE SULFATE [Concomitant]
  10. SIMVASTATIN [Concomitant]
  11. MORPHINE SUL INJ [Concomitant]
     Route: 042
  12. METOCLOPRAMIDE HYDROCHLORIDE [Concomitant]
  13. ASPIRIN [Concomitant]
  14. PARACETAMOL [Concomitant]
  15. FRUSEMIDE [Concomitant]
  16. SYMBICORT [Concomitant]

REACTIONS (5)
  - COUGH [None]
  - DYSPHAGIA [None]
  - ENLARGED UVULA [None]
  - SWOLLEN TONGUE [None]
  - TACHYCARDIA [None]
